FAERS Safety Report 13503608 (Version 2)
Quarter: 2017Q2

REPORT INFORMATION
  Report Type: Spontaneous
  Country: DE (occurrence: DE)
  Receive Date: 20170502
  Receipt Date: 20170607
  Transmission Date: 20170830
  Serious: Yes (Other)
  Sender: FDA-Public Use
  Company Number: DE-B.I. PHARMACEUTICALS,INC./RIDGEFIELD-2017-BI-020306

PATIENT
  Age: 89 Year
  Sex: Male
  Weight: 61 kg

DRUGS (4)
  1. AMLODIPIN [Concomitant]
     Active Substance: AMLODIPINE BESYLATE
     Indication: HYPERTENSION
     Route: 048
  2. ENALAPRIL [Concomitant]
     Active Substance: ENALAPRIL
     Indication: HYPERTENSION
     Route: 048
  3. CARVEDILOL. [Concomitant]
     Active Substance: CARVEDILOL
     Indication: HYPERTENSION
     Route: 048
  4. PRADAXA [Suspect]
     Active Substance: DABIGATRAN ETEXILATE MESYLATE
     Indication: CEREBROVASCULAR ACCIDENT PROPHYLAXIS
     Route: 065
     Dates: start: 2015

REACTIONS (10)
  - Endodontic procedure [Not Recovered/Not Resolved]
  - Eye haemorrhage [Recovered/Resolved]
  - Mobility decreased [Recovered/Resolved]
  - Gait disturbance [Unknown]
  - Haematoma [Recovered/Resolved]
  - Blindness transient [Unknown]
  - Visual impairment [Unknown]
  - Off label use [Not Recovered/Not Resolved]
  - Tooth disorder [Unknown]
  - Endodontic procedure [Unknown]

NARRATIVE: CASE EVENT DATE: 2015
